FAERS Safety Report 5693479-9 (Version None)
Quarter: 2008Q2

REPORT INFORMATION
  Report Type: 
  Country: None (occurrence: None)
  Receive Date: 20080402
  Receipt Date: 20080402
  Transmission Date: 20081010
  Serious: Yes (Life-Threatening, Hospitalization)
  Sender: FDA-Public Use
  Company Number: None

PATIENT
  Age: 50 Year
  Sex: Male
  Weight: 64.8644 kg

DRUGS (8)
  1. MONTELUKAST SODIUM [Suspect]
     Indication: ASTHMA
     Dates: start: 20060701, end: 20080315
  2. MONTELUKAST SODIUM [Suspect]
     Indication: MULTIPLE ALLERGIES
     Dates: start: 20060701, end: 20080315
  3. PAROXETINE HCL [Concomitant]
  4. BUPROPRIONE [Concomitant]
  5. QUETIAPINE FUMARATE [Concomitant]
  6. ALBUTEROL [Concomitant]
  7. ATORVASTATIN [Concomitant]
  8. ASPIRIN [Concomitant]

REACTIONS (2)
  - OVERDOSE [None]
  - SUICIDE ATTEMPT [None]
